FAERS Safety Report 5322149-1 (Version None)
Quarter: 2007Q2

REPORT INFORMATION
  Report Type: 
  Country: None (occurrence: None)
  Receive Date: 20070511
  Receipt Date: 20070502
  Transmission Date: 20071010
  Serious: Yes (Disabling, Other)
  Sender: FDA-Public Use
  Company Number: PL-AMGEN-UK175578

PATIENT
  Age: 19 Year
  Sex: Male

DRUGS (15)
  1. PALIFERMIN [Suspect]
     Indication: MUCOSAL INFLAMMATION
     Route: 042
     Dates: start: 20050820, end: 20050907
  2. CORTICOSTEROIDS [Suspect]
     Route: 065
  3. BUSULFAN [Concomitant]
     Route: 065
  4. CYCLOPHOSPHAMIDE [Concomitant]
     Route: 065
  5. ATGAM [Concomitant]
     Route: 065
  6. ITRACONAZOLE [Concomitant]
     Route: 048
  7. ACYCLOVIR [Concomitant]
     Route: 048
  8. TAZOCIN (LEDERLE) [Concomitant]
     Route: 042
  9. MAXIPIME [Concomitant]
     Route: 042
  10. VANCOMYCIN [Concomitant]
  11. METRONIDAZOLE [Concomitant]
     Route: 042
  12. NEORAL [Concomitant]
     Route: 042
  13. METHOTREXATE [Concomitant]
     Route: 065
  14. IMMUNE GLOBULIN INTRAVENOUS (HUMAN) [Concomitant]
     Route: 065
     Dates: start: 20050917
  15. ZYRTEC [Concomitant]
     Route: 048
     Dates: start: 20050908

REACTIONS (6)
  - DERMATITIS ACNEIFORM [None]
  - FEBRILE NEUTROPENIA [None]
  - GINGIVITIS [None]
  - GLOSSITIS [None]
  - INFECTION [None]
  - VIRAL PHARYNGITIS [None]
